FAERS Safety Report 6622016-7 (Version None)
Quarter: 2010Q1

REPORT INFORMATION
  Report Type: 
  Country: None (occurrence: None)
  Receive Date: 20100304
  Receipt Date: 20100222
  Transmission Date: 20100710
  Serious: Yes (Hospitalization)
  Sender: FDA-Public Use
  Company Number: B0636610A

PATIENT
  Age: 44 Year
  Sex: Male
  Weight: 67.8581 kg

DRUGS (7)
  1. LAMIVUDINE [Suspect]
     Indication: HIV INFECTION
     Dates: start: 20001001
  2. ZIDOVUDINE [Suspect]
     Indication: HIV INFECTION
     Dates: start: 20020801
  3. ABACAVIR SULFATE [Suspect]
     Indication: HIV INFECTION
     Dates: start: 20040201
  4. STAVUDINE [Suspect]
     Indication: HIV INFECTION
     Dates: start: 20001001
  5. NELFINAVIR MESYLATE [Suspect]
     Indication: HIV INFECTION
     Dates: start: 20001001
  6. DIDANOSINE [Suspect]
     Indication: HIV INFECTION
     Dates: start: 20020801
  7. LOPINAVIR AND RITONAVIR [Suspect]
     Indication: HIV INFECTION
     Dates: start: 20040201

REACTIONS (3)
  - ECONOMIC PROBLEM [None]
  - MOBILITY DECREASED [None]
  - OSTEONECROSIS [None]
